FAERS Safety Report 6050435-9 (Version None)
Quarter: 2009Q1

REPORT INFORMATION
  Report Type: 
  Country: None (occurrence: None)
  Receive Date: 20090122
  Receipt Date: 20090122
  Transmission Date: 20090719
  Serious: Yes (Other)
  Sender: FDA-Public Use
  Company Number: None

PATIENT
  Age: 53 Year
  Sex: Female
  Weight: 52.1637 kg

DRUGS (1)
  1. SKELAXIN [Suspect]
     Indication: MUSCLE RELAXANT THERAPY
     Dosage: 400 MG NIGHTLY PO
     Route: 048
     Dates: start: 20081106, end: 20081124

REACTIONS (3)
  - FEELING JITTERY [None]
  - GAIT DISTURBANCE [None]
  - SINUS CONGESTION [None]
